FAERS Safety Report 4315181-8 (Version None)
Quarter: 2004Q1

REPORT INFORMATION
  Report Type: 
  Country: None (occurrence: None)
  Receive Date: 20040310
  Receipt Date: 20040304
  Transmission Date: 20041129
  Serious: Yes (Hospitalization)
  Sender: FDA-Public Use
  Company Number: WAES 0403NZL00005

PATIENT
  Age: 64 Year
  Sex: Female

DRUGS (6)
  1. ASPIRIN [Concomitant]
  2. CANDESARTAN CILEXETIL [Concomitant]
  3. LEVOTHYROXINE SODIUM [Concomitant]
  4. METOPROLOL TARTRATE [Concomitant]
  5. ZOCOR [Suspect]
     Route: 048
     Dates: start: 20021201, end: 20031201
  6. ZOCOR [Suspect]
     Route: 048
     Dates: end: 20021201

REACTIONS (1)
  - MYOSITIS [None]
